FAERS Safety Report 4919868-5 (Version None)
Quarter: 2006Q1

REPORT INFORMATION
  Report Type: 
  Country: None (occurrence: None)
  Receive Date: 20060223
  Receipt Date: 20060214
  Transmission Date: 20060701
  Serious: Yes (Other)
  Sender: FDA-Public Use
  Company Number: DE-JNJFOC-20060203954

PATIENT
  Sex: Female

DRUGS (2)
  1. PROPULSID [Suspect]
     Indication: VOMITING
     Route: 048
  2. DAKTAR [Suspect]
     Route: 048

REACTIONS (2)
  - CARDIAC ARREST [None]
  - DYSPNOEA [None]
